FAERS Safety Report 6415545-2 (Version None)
Quarter: 2009Q4

REPORT INFORMATION
  Report Type: 
  Country: None (occurrence: None)
  Receive Date: 20091027
  Receipt Date: 20090817
  Transmission Date: 20100525
  Serious: No
  Sender: FDA-Public Use
  Company Number: US-BAYER-200930847NA

PATIENT
  Age: 18 Year
  Sex: Female
  Weight: 56 kg

DRUGS (1)
  1. ULTRAVIST 300 [Suspect]
     Indication: ANGIOGRAM
     Dosage: TOTAL DAILY DOSE: 90 ML  UNIT DOSE: 200 ML
     Route: 042
     Dates: start: 20090817, end: 20090817

REACTIONS (1)
  - URTICARIA [None]
